FAERS Safety Report 8576478 (Version 2)
Quarter: 2012Q4

REPORT INFORMATION
  Report Type: 
  Country: US (occurrence: US)
  Receive Date: 20120523
  Receipt Date: 20120831
  Transmission Date: 20130627
  Serious: Yes (Other)
  Sender: FDA-Public Use
  Company Number: US-ELI_LILLY_AND_COMPANY-US201205005490

PATIENT
  Age: 68 None
  Sex: Female
  Weight: 55.33 kg

DRUGS (22)
  1. FORTEO [Suspect]
     Indication: OSTEOPOROSIS
     Dosage: 20 ug, qd
     Route: 058
  2. AMLODIPINE [Concomitant]
     Dosage: 2.5 mg, each evening
     Route: 048
  3. AMLODIPINE [Concomitant]
     Dosage: 5.0 mg, qd
     Route: 048
  4. ASPIRIN [Concomitant]
     Dosage: 325 mg, qd
     Route: 048
  5. AZATHIOPRINE [Concomitant]
     Dosage: 50 mg, qd
     Route: 048
  6. BYSTOLIC [Concomitant]
     Dosage: 5 mg, qd
     Route: 048
  7. CALCITRIOL [Concomitant]
     Dosage: 0.25 DF, qd
     Route: 048
  8. CALCIUM [Concomitant]
     Dosage: UNK, qd
  9. CYCLOSPORINE [Concomitant]
     Dosage: 50 mg, bid
     Route: 048
  10. HUMALOG [Concomitant]
     Dosage: UNK, qd
     Route: 058
  11. HYDRALAZINE [Concomitant]
     Dosage: 10 mg, tid
     Route: 048
  12. HYDROCODONE W/ACETAMINOPHEN [Concomitant]
     Dosage: 5-500 mg tablet once daily
     Route: 048
  13. IBUPROFEN [Concomitant]
     Dosage: 400 mg, bid
     Route: 048
  14. CADEXOMER IODINE [Concomitant]
     Dosage: UNK, qd
     Route: 061
  15. ISOSORBIDE MONONITRATE [Concomitant]
     Dosage: 60 mg, qd
     Route: 048
  16. LEVOXYL [Concomitant]
     Dosage: 100 ug, qd
     Route: 048
  17. MULTIVITAMIN [Concomitant]
     Dosage: 1 capsule, qd
     Route: 048
  18. NITROLINGUAL [Concomitant]
     Indication: ANGINA PECTORIS
     Dosage: 0.4 mg, prn
  19. PLAVIX [Concomitant]
     Dosage: 75 mg, qd
     Route: 048
  20. PREDNISONE [Concomitant]
     Dosage: 5 mg, qd
     Route: 048
  21. PROAIR HFA [Concomitant]
     Dosage: UNK, prn
     Route: 055
  22. VITAMIN B12 [Concomitant]
     Dosage: 2000 ug, qd
     Route: 048

REACTIONS (7)
  - Myocardial infarction [Unknown]
  - Arthralgia [Unknown]
  - Myalgia [Unknown]
  - Spinal compression fracture [Unknown]
  - Pain [Unknown]
  - Vertigo positional [Recovered/Resolved]
  - Angina pectoris [Unknown]
